FAERS Safety Report 8776527 (Version 1)
Quarter: 2012Q4

REPORT INFORMATION
  Report Type: 
  Country: US (occurrence: US)
  Receive Date: 20120910
  Receipt Date: 20120910
  Transmission Date: 20130627
  Serious: Yes (Death, Hospitalization)
  Sender: FDA-Public Use
  Company Number: PHEH2012US017447

PATIENT
  Sex: Female
  Weight: 53.88 kg

DRUGS (1)
  1. GLEEVEC [Suspect]
     Dates: start: 20110421

REACTIONS (6)
  - Hepatomegaly [Fatal]
  - Hepatic mass [Fatal]
  - Hepatic haemorrhage [Fatal]
  - Sepsis [Fatal]
  - Gastrointestinal haemorrhage [Fatal]
  - Abdominal pain [Fatal]
